FAERS Safety Report 7327755-0 (Version None)
Quarter: 2011Q1

REPORT INFORMATION
  Report Type: 
  Country: None (occurrence: None)
  Receive Date: 20110224
  Receipt Date: 20110224
  Transmission Date: 20110831
  Serious: Yes (Other)
  Sender: FDA-Public Use
  Company Number: None

PATIENT
  Age: 67 Year
  Sex: Female
  Weight: 59 kg

DRUGS (2)
  1. PROLASTIN-C [Suspect]
     Indication: ALPHA-1 ANTI-TRYPSIN DEFICIENCY
     Dosage: 3540 MG ONCE PER WEEK IV
     Route: 042
     Dates: start: 20051118
  2. PROLASTIN-C [Suspect]

REACTIONS (1)
  - MYCOBACTERIAL INFECTION [None]
